FAERS Safety Report 7944127 (Version 2)
Quarter: 2013Q3

REPORT INFORMATION
  Report Type: Report from Study
  Country: MW (occurrence: MW)
  Receive Date: 20110513
  Receipt Date: 20130802
  Transmission Date: 20140515
  Serious: Yes (Death)
  Sender: FDA-Public Use
  Company Number: MW-ABBOTT-11P-100-0724445-00

PATIENT
  Age: 47 Year
  Sex: Male
  Weight: 48 kg

DRUGS (5)
  1. ALUVIA TABLETS [Suspect]
     Indication: HIV INFECTION
     Route: 048
     Dates: start: 20110214, end: 20110420
  2. RALTEGRAVIR [Concomitant]
     Indication: HIV INFECTION
     Dates: start: 20110214, end: 20110420
  3. COTRIMOXAZOLE [Concomitant]
     Indication: ANTIBIOTIC PROPHYLAXIS
     Dates: start: 20090109, end: 20110420
  4. ISONIAZID [Concomitant]
     Indication: PRODUCT USED FOR UNKNOWN INDICATION
     Dates: start: 20110113, end: 20110420
  5. RIFABUTIN [Concomitant]
     Indication: PRODUCT USED FOR UNKNOWN INDICATION
     Dates: start: 20110214, end: 20110420

REACTIONS (1)
  - Respiratory distress [Fatal]
